FAERS Safety Report 7224108-0 (Version None)
Quarter: 2011Q1

REPORT INFORMATION
  Report Type: 
  Country: None (occurrence: None)
  Receive Date: 20110113
  Receipt Date: 20110110
  Transmission Date: 20110831
  Serious: Yes (Hospitalization, Other)
  Sender: FDA-Public Use
  Company Number: US-ASTRAZENECA-2007UW07508

PATIENT
  Age: 399 Month
  Sex: Female
  Weight: 70.8 kg

DRUGS (20)
  1. SEROQUEL [Suspect]
     Dosage: 25 MG TID + 100 MG HS
     Route: 048
     Dates: start: 20031212, end: 20040524
  2. CELEXA [Concomitant]
     Dates: start: 20030101
  3. CYMBALTA [Concomitant]
     Dates: start: 20070912, end: 20080127
  4. PROTONIX [Concomitant]
     Dosage: 40 QD
     Dates: start: 20031224
  5. ZANTAC [Concomitant]
     Route: 048
     Dates: start: 20031224
  6. SEROQUEL [Suspect]
     Route: 048
     Dates: start: 20051116
  7. EFFEXOR [Concomitant]
     Dates: start: 20030101
  8. FLEXERIL [Concomitant]
     Dosage: 10 Q 8 PRN
     Dates: start: 20031224
  9. SEROQUEL [Suspect]
     Route: 048
     Dates: start: 20050829, end: 20051031
  10. TYLENOL-500 [Concomitant]
     Dosage: 650  MG Q 4-6 H PRN
     Route: 048
     Dates: start: 20031224
  11. SEROQUEL [Suspect]
     Dosage: 25 MG 1 AM AND BID HS 100 MG HS
     Route: 048
     Dates: start: 20040609, end: 20040902
  12. SEROQUEL [Suspect]
     Dosage: 25MG BID + 100MG HS
     Route: 048
     Dates: start: 20041206, end: 20050606
  13. WELLBUTRIN XL/WELLBUTRIN SR [Concomitant]
     Dates: start: 20040524, end: 20050613
  14. SEROQUEL [Suspect]
     Indication: DEPRESSION
     Route: 048
     Dates: start: 20031101, end: 20031212
  15. WELLBUTRIN XL/WELLBUTRIN SR [Concomitant]
     Dates: start: 20050607, end: 20060109
  16. DESYREL [Concomitant]
     Route: 048
     Dates: start: 20031224
  17. SEROQUEL [Suspect]
     Dosage: 175 MG DAILY
     Route: 048
     Dates: start: 20031224
  18. DESYREL [Concomitant]
     Dates: start: 20030101, end: 20060101
  19. PAXIL [Concomitant]
     Dates: start: 20070814, end: 20070926
  20. IRON SULFATETHIAMIN COMPOUND TAB [Concomitant]
     Dosage: 325 QD
     Dates: start: 20031224

REACTIONS (8)
  - UTERINE DISORDER [None]
  - PANIC ATTACK [None]
  - TYPE 2 DIABETES MELLITUS [None]
  - GLUCOSE TOLERANCE IMPAIRED [None]
  - SYNCOPE [None]
  - PANIC DISORDER [None]
  - PELVIC MASS [None]
  - UTERINE LEIOMYOMA [None]
